FAERS Safety Report 8583724-4 (Version None)
Quarter: 2012Q3

REPORT INFORMATION
  Report Type: 
  Country: None (occurrence: None)
  Receive Date: 20120810
  Receipt Date: 20120718
  Transmission Date: 20120928
  Serious: Yes (Hospitalization)
  Sender: FDA-Public Use
  Company Number: JP-009507513-1207JPN008002

PATIENT

DRUGS (12)
  1. TELAVIC [Suspect]
     Route: 048
     Dates: start: 20120515, end: 20120530
  2. REBETOL [Suspect]
     Route: 048
     Dates: start: 20120501, end: 20120521
  3. TELAVIC [Suspect]
     Indication: HEPATITIS C
     Route: 048
     Dates: start: 20120410, end: 20120413
  4. REBETOL [Suspect]
     Route: 048
     Dates: start: 20120425, end: 20120430
  5. REBETOL [Suspect]
     Route: 048
     Dates: start: 20120522, end: 20120528
  6. PEG-INTRON [Suspect]
     Indication: HEPATITIS C
     Dosage: 1.5MCG/KG/WEEK
     Route: 058
     Dates: start: 20120410, end: 20120529
  7. TELAVIC [Suspect]
     Route: 048
     Dates: start: 20120423, end: 20120514
  8. XYZAL [Concomitant]
     Indication: PROPHYLAXIS
     Route: 048
     Dates: start: 20120207, end: 20120604
  9. SELBEX [Concomitant]
     Indication: PROPHYLAXIS
     Route: 048
     Dates: start: 20120410, end: 20120604
  10. REBETOL [Suspect]
     Indication: HEPATITIS C
     Route: 048
     Dates: start: 20120410, end: 20120424
  11. REBETOL [Suspect]
     Route: 048
     Dates: start: 20120529, end: 20120530
  12. TELAVIC [Suspect]
     Route: 048
     Dates: start: 20120414, end: 20120422

REACTIONS (2)
  - BIPOLAR I DISORDER [None]
  - ANAEMIA [None]
